FAERS Safety Report 24400267 (Version 2)
Quarter: 2024Q4

REPORT INFORMATION
  Report Type: Spontaneous
  Country: US (occurrence: US)
  Receive Date: 20241005
  Receipt Date: 20241220
  Transmission Date: 20250115
  Serious: Yes (Other)
  Sender: BAYER HEALTHCARE PHARMACEUTICALS INC.
  Company Number: US-BAYER-2024A138605

PATIENT
  Age: 46 Year
  Sex: Female
  Weight: 68.9 kg

DRUGS (1)
  1. MIRENA [Suspect]
     Active Substance: LEVONORGESTREL
     Indication: Contraception
     Dosage: 20?G/DAY
     Route: 015
     Dates: start: 201709, end: 20240924

REACTIONS (5)
  - Embedded device [Recovered/Resolved]
  - Device breakage [None]
  - Device defective [None]
  - Complication of device removal [None]
  - Device difficult to use [None]

NARRATIVE: CASE EVENT DATE: 20240924
